FAERS Safety Report 8617120 (Version 3)
Quarter: 2013Q3

REPORT INFORMATION
  Report Type: Report from Study
  Country: ES (occurrence: ES)
  Receive Date: 20120615
  Receipt Date: 20130731
  Transmission Date: 20140515
  Serious: Yes (Hospitalization, Other)
  Sender: FDA-Public Use
  Company Number: ES-JNJFOC-20101005311

PATIENT
  Age: 35 Year
  Sex: Male
  Weight: 56.7 kg

DRUGS (8)
  1. REMICADE [Suspect]
     Indication: COLITIS ULCERATIVE
     Route: 042
     Dates: start: 20100419
  2. REMICADE [Suspect]
     Indication: COLITIS ULCERATIVE
     Route: 042
     Dates: start: 20100503
  3. REMICADE [Suspect]
     Indication: COLITIS ULCERATIVE
     Route: 042
     Dates: end: 20110530
  4. REMICADE [Suspect]
     Indication: COLITIS ULCERATIVE
     Dosage: INCREASED TO 300 MG ON 15-MAR-2011
     Route: 042
     Dates: start: 20100527
  5. FOLIC ACID [Concomitant]
     Indication: COLITIS ULCERATIVE
     Route: 048
     Dates: start: 20060223
  6. AZATHIOPRINE [Concomitant]
     Indication: COLITIS ULCERATIVE
     Route: 048
     Dates: start: 20050803
  7. AZATHIOPRINE [Concomitant]
     Indication: COLITIS ULCERATIVE
     Route: 048
  8. OMEPRAZOLE [Concomitant]
     Route: 065

REACTIONS (2)
  - Lung infection [Recovered/Resolved]
  - Pyrexia [Unknown]
